FAERS Safety Report 18257678 (Version 1)
Quarter: 2020Q3

REPORT INFORMATION
  Report Type: Spontaneous
  Country: US (occurrence: US)
  Receive Date: 20200504
  Receipt Date: 20200504
  Transmission Date: 20201103
  Serious: No
  Sender: FDA-Public Use
  Company Number: None

PATIENT
  Age: 4 Decade
  Sex: Male

DRUGS (3)
  1. LOPINAVIR?RITONAVIR [Suspect]
     Active Substance: LOPINAVIR\RITONAVIR
     Indication: COVID-19
     Dosage: ?          OTHER DOSE:400/100 MG;?
     Route: 048
     Dates: start: 2020
  2. ARBIDOL [Suspect]
     Active Substance: UMIFENOVIR
     Indication: COVID-19
     Route: 048
     Dates: start: 2020
  3. SHUFENG JIEDU [Suspect]
     Active Substance: HERBALS
     Indication: COVID-19
     Route: 048
     Dates: start: 2020

REACTIONS (3)
  - White blood cell count increased [None]
  - Pneumonia [None]
  - Lymphocyte count increased [None]
